FAERS Safety Report 6996922-8 (Version None)
Quarter: 2010Q3

REPORT INFORMATION
  Report Type: 
  Country: None (occurrence: None)
  Receive Date: 20100918
  Receipt Date: 20090914
  Transmission Date: 20110219
  Serious: No
  Sender: FDA-Public Use
  Company Number: US-WYE-H10231609

PATIENT
  Sex: Male
  Weight: 111.23 kg

DRUGS (4)
  1. PRISTIQ [Suspect]
     Indication: DEPRESSION
     Dosage: UNKNOWN
     Route: 048
     Dates: start: 20081201
  2. METFORMIN [Concomitant]
  3. OLANZAPINE [Concomitant]
     Dosage: UNKNOWN
     Dates: end: 20090601
  4. CRESTOR [Concomitant]

REACTIONS (1)
  - DRUG INEFFECTIVE [None]
